FAERS Safety Report 10019199 (Version 1)
Quarter: 2014Q1

REPORT INFORMATION
  Report Type: Spontaneous
  Country: CA (occurrence: None)
  Receive Date: 20140312
  Receipt Date: 20140312
  Transmission Date: 20141002
  Serious: Yes (Hospitalization)
  Sender: FDA-Public Use
  Company Number: FK201400747

PATIENT
  Age: 67 Year
  Sex: Male

DRUGS (6)
  1. OXALIPLATIN [Suspect]
     Indication: ADENOCARCINOMA OF COLON
     Dosage: 13 CYCLES
  2. LEUCOVORIN(CALCIUM FOLINATE) [Concomitant]
  3. FLUOROURACIL(FLUOROURACIL)(INJECTION)(FLUOR0URACIL)? [Concomitant]
  4. BEVACIZUMAB(BEVACIZUMAB) [Concomitant]
  5. IRINOTECAN(IRINOTECAN) (IRINOTECAN) [Concomitant]
  6. CAPECITABINE(CAPECITABINE) [Concomitant]

REACTIONS (11)
  - Chest discomfort [None]
  - Flushing [None]
  - Normochromic normocytic anaemia [None]
  - Thrombocytopenia [None]
  - Leukopenia [None]
  - Febrile neutropenia [None]
  - Renal tubular necrosis [None]
  - Blood urine present [None]
  - Gastrointestinal haemorrhage [None]
  - Haemodialysis [None]
  - Protein urine present [None]
